FAERS Safety Report 7298833-X (Version None)
Quarter: 2011Q1

REPORT INFORMATION
  Report Type: 
  Country: None (occurrence: None)
  Receive Date: 20110209
  Receipt Date: 20110121
  Transmission Date: 20110831
  Serious: Yes (Hospitalization, Other)
  Sender: FDA-Public Use
  Company Number: 2010070048

PATIENT
  Age: 65 Year
  Sex: Male

DRUGS (8)
  1. HOKUNALIN (TULOBUTEROL) [Concomitant]
  2. TOMIRON (CEFTERAM) [Concomitant]
  3. LUPRAC (TORASEMIDE) [Suspect]
     Indication: CARDIAC FAILURE
     Dosage: 4 MG (4 MG,1 IN 1 D),ORAL
     Route: 048
     Dates: start: 20100406, end: 20100621
  4. UFT [Concomitant]
  5. LEBENIN (LACTOBACILLUS ACIDOPHILUS) [Concomitant]
  6. LASIX [Concomitant]
  7. SPIRIVA [Concomitant]
  8. MUCOSOLVAN (AMBROXOL) [Concomitant]

REACTIONS (8)
  - ASCITES [None]
  - HEPATIC ENCEPHALOPATHY [None]
  - OEDEMA [None]
  - CONDITION AGGRAVATED [None]
  - AUTOIMMUNE HEPATITIS [None]
  - HEPATITIS ACUTE [None]
  - NEPHROTIC SYNDROME [None]
  - CHOLESTASIS [None]
